FAERS Safety Report 4724704-6 (Version None)
Quarter: 2005Q3

REPORT INFORMATION
  Report Type: 
  Country: None (occurrence: None)
  Receive Date: 20050720
  Receipt Date: 20050720
  Transmission Date: 20060218
  Serious: Yes (Death)
  Sender: FDA-Public Use
  Company Number: None

PATIENT
  Age: 39 Year
  Sex: Female
  Weight: 72.5755 kg

DRUGS (1)
  1. FENTANYL [Suspect]
     Indication: BACK PAIN
     Dosage: 50MCG Q3DAYS  TOPICAL   TRANSDERMA
     Route: 062
     Dates: start: 20040422, end: 20041203

REACTIONS (1)
  - DRUG DEPENDENCE [None]
